FAERS Safety Report 12391372 (Version 1)
Quarter: 2016Q2

REPORT INFORMATION
  Report Type: Spontaneous
  Country: ID (occurrence: ID)
  Receive Date: 20160520
  Receipt Date: 20160520
  Transmission Date: 20160815
  Serious: Yes (Life-Threatening, Hospitalization, Other)
  Sender: FDA-Public Use
  Company Number: ID-ASTRAZENECA-2016SE52241

PATIENT

DRUGS (2)
  1. THROMBO ASPILET [Concomitant]
  2. TICAGRELOR [Suspect]
     Active Substance: TICAGRELOR
     Indication: PERCUTANEOUS CORONARY INTERVENTION
     Route: 048

REACTIONS (3)
  - Haematuria [Unknown]
  - Melaena [Unknown]
  - Anaemia [Unknown]
